FAERS Safety Report 4728583-2 (Version None)
Quarter: 2005Q3

REPORT INFORMATION
  Report Type: 
  Country: None (occurrence: None)
  Receive Date: 20050729
  Receipt Date: 20020312
  Transmission Date: 20060218
  Serious: Yes (Hospitalization)
  Sender: FDA-Public Use
  Company Number: PHBS2002BR03528

PATIENT
  Age: 53 Year
  Sex: Male
  Weight: 67 kg

DRUGS (7)
  1. GLEEVEC [Suspect]
     Indication: GASTROINTESTINAL STROMAL TUMOUR
     Dosage: 600 MG/D
     Route: 048
     Dates: start: 20011021, end: 20020604
  2. GLEEVEC [Suspect]
     Dosage: 400 MG/D
     Route: 048
     Dates: start: 20020605
  3. REMERON [Suspect]
     Indication: DEPRESSION
     Dosage: 15 MG/DAY
     Route: 048
  4. LEXOTAN [Concomitant]
     Dosage: 1 DF/DAY
     Route: 048
  5. METFORMIN [Concomitant]
     Dosage: 250 MG/D
     Route: 048
  6. GLUCOBAY [Concomitant]
     Dosage: 100 MG/D
     Route: 048
  7. VALIUM [Concomitant]
     Dosage: 5 MG, PRN
     Route: 048

REACTIONS (10)
  - BLOOD CREATINE PHOSPHOKINASE INCREASED [None]
  - BLOOD PRESSURE DECREASED [None]
  - DRUG INTERACTION [None]
  - ERECTILE DYSFUNCTION [None]
  - EYE DISORDER [None]
  - EYELID OEDEMA [None]
  - FLATULENCE [None]
  - NAUSEA [None]
  - PAIN IN EXTREMITY [None]
  - PROSTATIC SPECIFIC ANTIGEN INCREASED [None]
